FAERS Safety Report 6402082-4 (Version None)
Quarter: 2009Q4

REPORT INFORMATION
  Report Type: 
  Country: None (occurrence: None)
  Receive Date: 20091015
  Receipt Date: 20091013
  Transmission Date: 20100525
  Serious: Yes (Hospitalization)
  Sender: FDA-Public Use
  Company Number: US-BRISTOL-MYERS SQUIBB COMPANY-14816425

PATIENT
  Age: 73 Year
  Sex: Female
  Weight: 58 kg

DRUGS (3)
  1. ERBITUX [Suspect]
     Indication: NON-SMALL CELL LUNG CANCER
     Dosage: COURSE-5
     Dates: start: 20090831, end: 20091005
  2. TAXOL [Suspect]
     Indication: NON-SMALL CELL LUNG CANCER
     Dosage: COURSE-5
     Dates: start: 20090908, end: 20091005
  3. CARBOPLATIN [Suspect]
     Indication: NON-SMALL CELL LUNG CANCER
     Dosage: COURSE-5
     Dates: start: 20090908, end: 20091005

REACTIONS (2)
  - ATRIAL FIBRILLATION [None]
  - DEHYDRATION [None]
